FAERS Safety Report 16910846 (Version 1)
Quarter: 2019Q4

REPORT INFORMATION
  Report Type: Spontaneous
  Country: US (occurrence: US)
  Receive Date: 20191012
  Receipt Date: 20191012
  Transmission Date: 20200122
  Serious: No
  Sender: FDA-Public Use
  Company Number: US-BION-007578

PATIENT
  Sex: Female

DRUGS (1)
  1. BION PHARMA^S PROGESTERONE 200 MG CAPSULE [Suspect]
     Active Substance: PROGESTERONE
     Indication: MENOPAUSE
     Dosage: STRENGTH: 200 MG

REACTIONS (3)
  - Insomnia [Unknown]
  - Drug ineffective [Not Recovered/Not Resolved]
  - Vaginal haemorrhage [Unknown]
